FAERS Safety Report 17196097 (Version 1)
Quarter: 2019Q4

REPORT INFORMATION
  Report Type: Report from Study
  Country: CO (occurrence: CO)
  Receive Date: 20191224
  Receipt Date: 20191224
  Transmission Date: 20200122
  Serious: Yes (Other)
  Sender: FDA-Public Use
  Company Number: CO-JNJFOC-20191127647

PATIENT
  Weight: 50 kg

DRUGS (1)
  1. SIMPONI [Suspect]
     Active Substance: GOLIMUMAB
     Indication: RHEUMATOID ARTHRITIS
     Route: 058

REACTIONS (7)
  - Chemotherapy [Unknown]
  - Decreased immune responsiveness [Unknown]
  - Pain [Unknown]
  - Malaise [Unknown]
  - Influenza [Unknown]
  - Arthritis [Unknown]
  - Hypokinesia [Unknown]
